FAERS Safety Report 16864502 (Version 1)
Quarter: 2019Q3

REPORT INFORMATION
  Report Type: Spontaneous
  Country: ES (occurrence: ES)
  Receive Date: 20190928
  Receipt Date: 20190928
  Transmission Date: 20191005
  Serious: Yes (Hospitalization)
  Sender: FDA-Public Use
  Company Number: ES-ACCORD-155983

PATIENT
  Age: 29 Year
  Sex: Male

DRUGS (5)
  1. SALOFALK [Concomitant]
     Indication: COLITIS ULCERATIVE
     Dosage: 1000 MG GASTRO-RESISTANT PROLONGED-RELEASE GRANULES, 50 SACHETS
     Route: 048
     Dates: start: 201809
  2. TACROLIMUS. [Suspect]
     Active Substance: TACROLIMUS
     Indication: COLITIS ULCERATIVE
     Route: 048
     Dates: start: 20190306, end: 20190517
  3. ENTYVIO [Suspect]
     Active Substance: VEDOLIZUMAB
     Indication: COLITIS ULCERATIVE
     Dosage: 300 MG ,1 VIAL
     Route: 042
     Dates: start: 20190307, end: 20190426
  4. SALOFALK [Concomitant]
     Indication: COLITIS ULCERATIVE
     Dosage: 1 G SUPPOSITORIES, 30 SUPPOSITORIES
     Route: 054
     Dates: start: 201809
  5. OMEPRAZOL [Concomitant]
     Active Substance: OMEPRAZOLE
     Indication: PROPHYLAXIS
     Route: 048
     Dates: start: 201808

REACTIONS (1)
  - Acute interstitial pneumonitis [Recovering/Resolving]

NARRATIVE: CASE EVENT DATE: 201904
